FAERS Safety Report 13679470 (Version 2)
Quarter: 2017Q3

REPORT INFORMATION
  Report Type: Report from Study
  Country: CA (occurrence: CA)
  Receive Date: 20170622
  Receipt Date: 20170929
  Transmission Date: 20171127
  Serious: Yes (Hospitalization, Other)
  Sender: FDA-Public Use
  Company Number: CA-BRISTOL-MYERS SQUIBB COMPANY-BMS-2017-029867

PATIENT
  Age: 45 Year
  Sex: Female

DRUGS (1)
  1. ABATACEPT [Suspect]
     Active Substance: ABATACEPT
     Indication: RHEUMATOID ARTHRITIS
     Dosage: 1000 MG, Q3WK
     Route: 042
     Dates: start: 20160322

REACTIONS (5)
  - Catheter site infection [Recovered/Resolved]
  - Metabolic surgery [Unknown]
  - Off label use [Unknown]
  - Pain [Not Recovered/Not Resolved]
  - Drug dose omission [Unknown]

NARRATIVE: CASE EVENT DATE: 20170504
